FAERS Safety Report 23334485 (Version 2)
Quarter: 2024Q1

REPORT INFORMATION
  Report Type: Spontaneous
  Country: DE (occurrence: DE)
  Receive Date: 20231224
  Receipt Date: 20240102
  Transmission Date: 20240409
  Serious: Yes (Hospitalization, Other)
  Sender: FDA-Public Use
  Company Number: DE-BRISTOL-MYERS SQUIBB COMPANY-2023-084756

PATIENT
  Age: 64 Year
  Sex: Female
  Weight: 62 kg

DRUGS (15)
  1. OXALIPLATIN [Suspect]
     Active Substance: OXALIPLATIN
     Indication: Gastric cancer
     Dosage: 150 MILLIGRAM EVERY TWO WEEKS
     Route: 042
     Dates: start: 20230526
  2. FLUOROURACIL [Suspect]
     Active Substance: FLUOROURACIL
     Indication: Gastric cancer
     Dosage: 4200 MILLIGRAM EVERY TWO WEEKS
     Route: 042
     Dates: start: 20230526
  3. OPDIVO [Suspect]
     Active Substance: NIVOLUMAB
     Indication: Gastric cancer
     Dosage: 240 MILLIGRAM EVERY TWO WEEKS
     Route: 042
     Dates: start: 20230526
  4. Novalgin [Concomitant]
     Indication: Prophylaxis
     Dosage: UNK
     Route: 048
  5. LEUCOVORIN [Concomitant]
     Active Substance: LEUCOVORIN\LEUCOVORIN CALCIUM
     Indication: Gastric cancer
     Dosage: 350 MILLIGRAM, ONCE A DAY
     Route: 042
     Dates: start: 20230526, end: 20230526
  6. LEUCOVORIN [Concomitant]
     Active Substance: LEUCOVORIN\LEUCOVORIN CALCIUM
     Dosage: 340 MILLIGRAM, ONCE A DAY
     Route: 042
     Dates: start: 20230609
  7. COBAMAMIDE [Concomitant]
     Active Substance: COBAMAMIDE
     Indication: Prophylaxis
     Dosage: 1 MILLIGRAM, ONCE A DAY
     Route: 042
     Dates: start: 20230526, end: 20230526
  8. COBAMAMIDE [Concomitant]
     Active Substance: COBAMAMIDE
     Dosage: 1 MILLIGRAM, ONCE A DAY
     Route: 042
     Dates: start: 20230609, end: 20230609
  9. COBAMAMIDE [Concomitant]
     Active Substance: COBAMAMIDE
     Dosage: 1 MILLIGRAM, ONCE A DAY
     Route: 042
     Dates: start: 20230707
  10. COBAMAMIDE [Concomitant]
     Active Substance: COBAMAMIDE
     Dosage: 1000 MICROGRAM, ONCE A DAY
     Route: 058
     Dates: start: 20231110, end: 20231110
  11. MCP [Concomitant]
     Active Substance: METOCLOPRAMIDE HYDROCHLORIDE
     Indication: Prophylaxis
     Dosage: 10 MILLIGRAM, ONCE A DAY
     Route: 048
  12. DEXAMETHASONE [Concomitant]
     Active Substance: DEXAMETHASONE
     Indication: Prophylaxis
     Dosage: 8 MILLIGRAM, EVERY WEEK
     Route: 042
     Dates: start: 20230526, end: 20230707
  13. DEXAMETHASONE [Concomitant]
     Active Substance: DEXAMETHASONE
     Dosage: 4 MILLIGRAM
     Route: 048
  14. LOPERAMIDE [Concomitant]
     Active Substance: LOPERAMIDE
     Indication: Prophylaxis
     Dosage: UNK
     Route: 048
  15. GRANISETRON [Concomitant]
     Active Substance: GRANISETRON
     Indication: Prophylaxis
     Dosage: 3 MILLIGRAM, EVERY WEEK
     Route: 042
     Dates: start: 20230526

REACTIONS (8)
  - Urethritis [Recovered/Resolved]
  - Device related infection [Unknown]
  - Leukopenia [Recovered/Resolved]
  - Polyneuropathy [Not Recovered/Not Resolved]
  - Urinary retention [Unknown]
  - Dysuria [Recovered/Resolved]
  - Pollakiuria [Unknown]
  - Oliguria [Unknown]

NARRATIVE: CASE EVENT DATE: 20230613
